FAERS Safety Report 5844603-6 (Version None)
Quarter: 2008Q3

REPORT INFORMATION
  Report Type: 
  Country: None (occurrence: None)
  Receive Date: 20080812
  Receipt Date: 20080729
  Transmission Date: 20090109
  Serious: Yes (Other)
  Sender: FDA-Public Use
  Company Number: 2008S1008071

PATIENT
  Age: 43 Year
  Sex: Female

DRUGS (11)
  1. ENDEP [Suspect]
     Indication: NEURALGIA
     Dosage: 150 MG; AT BEDTIME; ORAL, 125 MG; AT BEDTIME; ORAL, 100 MG; AT BEDTIME; ORAL
     Route: 048
     Dates: start: 20051201, end: 20080714
  2. ENDEP [Suspect]
     Indication: NEURALGIA
     Dosage: 150 MG; AT BEDTIME; ORAL, 125 MG; AT BEDTIME; ORAL, 100 MG; AT BEDTIME; ORAL
     Route: 048
     Dates: start: 20080715, end: 20080722
  3. ENDEP [Suspect]
     Indication: NEURALGIA
     Dosage: 150 MG; AT BEDTIME; ORAL, 125 MG; AT BEDTIME; ORAL, 100 MG; AT BEDTIME; ORAL
     Route: 048
     Dates: start: 20080723
  4. TRIFEME [Concomitant]
  5. LYRICA [Concomitant]
  6. NEURONTIN [Concomitant]
  7. DITROPAN [Concomitant]
  8. PANADEINE [Concomitant]
  9. VESICARE [Concomitant]
  10. COLOXYL WITH SENNA [Concomitant]
  11. AVANZA [Concomitant]

REACTIONS (7)
  - ABNORMAL SLEEP-RELATED EVENT [None]
  - DRY MOUTH [None]
  - GINGIVITIS [None]
  - ORAL CANDIDIASIS [None]
  - POLLAKIURIA [None]
  - SENSITIVITY OF TEETH [None]
  - URINARY RETENTION [None]
